FAERS Safety Report 8958247 (Version 2)
Quarter: 2013Q1

REPORT INFORMATION
  Report Type: Report from Study
  Country: DE (occurrence: DE)
  Receive Date: 20121211
  Receipt Date: 20130116
  Transmission Date: 20140127
  Serious: Yes (Other)
  Sender: FDA-Public Use
  Company Number: DE-ROCHE-1165448

PATIENT
  Age: 59 Year
  Sex: Male
  Weight: 80.2 kg

DRUGS (4)
  1. PEGINTERFERON ALFA-2B [Suspect]
     Indication: HEPATITIS C
     Route: 065
     Dates: start: 20050913, end: 20060831
  2. RIBAVIRIN [Suspect]
     Indication: HEPATITIS C
     Route: 065
     Dates: start: 20050913, end: 20060831
  3. ASPIRIN [Concomitant]
     Indication: CORONARY ARTERY DISEASE
     Route: 065
     Dates: start: 20040412
  4. RAMIPRIL [Concomitant]
     Indication: HYPERTENSION
     Route: 065
     Dates: start: 20050523

REACTIONS (3)
  - Splenomegaly [Unknown]
  - Hepatocellular carcinoma [Unknown]
  - Hepatitis C [Unknown]
